FAERS Safety Report 10578337 (Version 1)
Quarter: 2014Q4

REPORT INFORMATION
  Report Type: Spontaneous
  Country: US (occurrence: None)
  Receive Date: 20141111
  Receipt Date: 20141111
  Transmission Date: 20150529
  Serious: Yes (Disabling)
  Sender: FDA-Public Use
  Company Number: None

PATIENT
  Age: 34 Year
  Sex: Female

DRUGS (1)
  1. LUPRON DEPOT [Suspect]
     Active Substance: LEUPROLIDE ACETATE
     Indication: ENDOMETRIOSIS
     Dosage: EVERY 3 MONTHS INTO THE MUSCLE
     Route: 030

REACTIONS (17)
  - Arthralgia [None]
  - Weight increased [None]
  - Rash [None]
  - Mood swings [None]
  - Joint range of motion decreased [None]
  - Arthropathy [None]
  - Bone pain [None]
  - Alopecia [None]
  - Hot flush [None]
  - Aphasia [None]
  - Insomnia [None]
  - Cyst [None]
  - Memory impairment [None]
  - Learning disability [None]
  - Hyperaesthesia [None]
  - Feeling abnormal [None]
  - Psychiatric symptom [None]
